FAERS Safety Report 7931698-9 (Version None)
Quarter: 2011Q4

REPORT INFORMATION
  Report Type: 
  Country: None (occurrence: None)
  Receive Date: 20111121
  Receipt Date: 20111115
  Transmission Date: 20120403
  Serious: Yes (Disabling, Other)
  Sender: FDA-Public Use
  Company Number: PHEH2011US009592

PATIENT
  Sex: Female
  Weight: 60.771 kg

DRUGS (2)
  1. FEMARA [Suspect]
     Indication: BREAST CANCER
     Dosage: UNK
     Dates: start: 20100101, end: 20100101
  2. ARIMIDEX [Suspect]
     Indication: BREAST CANCER
     Dosage: UNK
     Dates: start: 20100601, end: 20100101

REACTIONS (3)
  - GAIT DISTURBANCE [None]
  - ARTHRITIS [None]
  - HYPOAESTHESIA [None]
